FAERS Safety Report 8781155 (Version 2)
Quarter: 2013Q4

REPORT INFORMATION
  Report Type: Report from Study
  Country: US (occurrence: US)
  Receive Date: 20120913
  Receipt Date: 20131101
  Transmission Date: 20140711
  Serious: Yes (Hospitalization)
  Sender: FDA-Public Use
  Company Number: US-009507513-1208USA007124

PATIENT
  Age: 49 Year
  Sex: Female

DRUGS (4)
  1. VICTRELIS [Suspect]
     Indication: HEPATITIS C
     Dosage: UNK
     Dates: start: 20111020
  2. REBETOL [Suspect]
     Indication: HEPATITIS C
     Dosage: 1200 MG, UNK
     Dates: start: 20111020
  3. PEGINTERFERON ALFA-2A [Suspect]
     Indication: HEPATITIS C
     Dosage: 180 MICROGRAM (1 IN 1 WEEK) IN DIVIDED DOSES
     Route: 058
     Dates: start: 20111020
  4. TELAPREVIR [Suspect]
     Indication: HEPATITIS C
     Dosage: 2 DF, UNK
     Dates: start: 20111020

REACTIONS (5)
  - Anaemia [Unknown]
  - Pyelonephritis [Unknown]
  - White blood cell count decreased [Unknown]
  - Fatigue [Unknown]
  - Dizziness [Unknown]
